FAERS Safety Report 5188838-7 (Version None)
Quarter: 2006Q4

REPORT INFORMATION
  Report Type: 
  Country: None (occurrence: None)
  Receive Date: 20061215
  Receipt Date: 20061130
  Transmission Date: 20070319
  Serious: Yes (Death)
  Sender: FDA-Public Use
  Company Number: T200601282

PATIENT
  Age: 20 Year
  Sex: Female
  Weight: 47.2 kg

DRUGS (11)
  1. METHADON HCL TAB [Suspect]
  2. FENTANYL [Concomitant]
  3. PROZAC [Concomitant]
  4. ADDERALL 10 [Concomitant]
  5. RISPERDAL [Concomitant]
  6. DESYREL [Concomitant]
  7. CELEBREX [Concomitant]
  8. NEURONTIN [Concomitant]
  9. VICODIN [Concomitant]
  10. ORTHO TRI-CYCLEN [Concomitant]
  11. NASONEX [Concomitant]

REACTIONS (4)
  - BRAIN CONTUSION [None]
  - BRONCHOPNEUMONIA [None]
  - DRUG TOXICITY [None]
  - PULMONARY OEDEMA [None]
